FAERS Safety Report 20999312 (Version 1)
Quarter: 2022Q2

REPORT INFORMATION
  Report Type: Spontaneous
  Country: JP (occurrence: JP)
  Receive Date: 20220623
  Receipt Date: 20220623
  Transmission Date: 20220721
  Serious: Yes (Other)
  Sender: FDA-Public Use
  Company Number: JP-PFIZER INC-PV202200001180

PATIENT
  Age: 10 Year
  Sex: Female
  Weight: 25.2 kg

DRUGS (2)
  1. TOFACITINIB CITRATE [Suspect]
     Active Substance: TOFACITINIB CITRATE
     Indication: Bone marrow failure
     Dosage: UNK
  2. TOFACITINIB CITRATE [Suspect]
     Active Substance: TOFACITINIB CITRATE
     Indication: Infection susceptibility increased

REACTIONS (3)
  - Polyomavirus-associated nephropathy [Unknown]
  - Off label use [Unknown]
  - Off label use [Unknown]
